FAERS Safety Report 19003737 (Version 1)
Quarter: 2021Q1

REPORT INFORMATION
  Report Type: Spontaneous
  Country: GB (occurrence: GB)
  Receive Date: 20210312
  Receipt Date: 20210312
  Transmission Date: 20210420
  Serious: Yes (Other)
  Sender: FDA-Public Use
  Company Number: GB-PFIZER INC-2021234373

PATIENT
  Age: 33 Year
  Sex: Female
  Weight: 65 kg

DRUGS (9)
  1. DOXYCYCLINE MONOHYDRATE [Suspect]
     Active Substance: DOXYCYCLINE
     Indication: ACNE
     Dosage: 1 DF, 1X/DAY
     Dates: start: 20210222, end: 2021
  2. ADAPALENE. [Concomitant]
     Active Substance: ADAPALENE
     Indication: ILL-DEFINED DISORDER
     Dosage: APPLY ONCE DAILY
     Dates: start: 20210222
  3. BENZOYL PEROXIDE. [Concomitant]
     Active Substance: BENZOYL PEROXIDE
     Indication: ILL-DEFINED DISORDER
     Dosage: APPLY THINLY ONCE DAILY IN THE EVENING
     Dates: start: 20210301
  4. FERROUS FUMARATE [Concomitant]
     Active Substance: FERROUS FUMARATE
     Indication: ILL-DEFINED DISORDER
     Dosage: 1 DF, 3X/DAY
     Dates: start: 20210224
  5. NOVORAPID [Concomitant]
     Active Substance: INSULIN ASPART
     Indication: ILL-DEFINED DISORDER
     Dosage: 8/14/10?12
     Dates: start: 20200706
  6. GLUCOSE [Concomitant]
     Active Substance: DEXTROSE
     Indication: ILL-DEFINED DISORDER
     Dosage: USE AS DIRECTED
     Dates: start: 20200706
  7. NIFEDIPINE. [Concomitant]
     Active Substance: NIFEDIPINE
     Indication: ILL-DEFINED DISORDER
     Dosage: 1 DF, 3X/DAY
     Dates: start: 20210225
  8. TOUJEO [Concomitant]
     Active Substance: INSULIN GLARGINE
     Indication: ILL-DEFINED DISORDER
     Dosage: USE AS DIRECTED BY YOUR DIABETIC SPECIALIST ONC...
     Dates: start: 20200706
  9. GLUCAGON. [Concomitant]
     Active Substance: GLUCAGON
     Indication: ILL-DEFINED DISORDER
     Dosage: USE AS DIRECTED
     Dates: start: 20200706

REACTIONS (2)
  - Eye swelling [Recovering/Resolving]
  - Eye pain [Recovering/Resolving]

NARRATIVE: CASE EVENT DATE: 20210224
